FAERS Safety Report 6652379-8 (Version None)
Quarter: 2010Q1

REPORT INFORMATION
  Report Type: 
  Country: None (occurrence: None)
  Receive Date: 20100325
  Receipt Date: 20100323
  Transmission Date: 20100710
  Serious: Yes (Hospitalization)
  Sender: FDA-Public Use
  Company Number: CN-ROCHE-685046

PATIENT
  Sex: Female
  Weight: 70 kg

DRUGS (11)
  1. TOCILIZUMAB [Suspect]
     Indication: RHEUMATOID ARTHRITIS
     Dosage: STARTING DOSE: 8 MG/KG, TOTAL MONTHLY DOSE: 28 ML
     Route: 042
     Dates: start: 20060821
  2. TOCILIZUMAB [Suspect]
     Dosage: DOSE REPROTED AS: 27
     Route: 042
     Dates: start: 20091014
  3. TOCILIZUMAB [Suspect]
     Dosage: DOSE REPROTED AS: 27
     Route: 042
     Dates: start: 20091111
  4. TOCILIZUMAB [Suspect]
     Dosage: DOSE REPROTED AS: 27
     Route: 042
     Dates: start: 20091209
  5. TOCILIZUMAB [Suspect]
     Dosage: DOSE REPORTED AS: 28
     Route: 042
     Dates: start: 20100106
  6. TOCILIZUMAB [Suspect]
     Route: 042
     Dates: end: 20100203
  7. TOCILIZUMAB [Suspect]
     Dosage: THE PATIENT WAS PREVIOUSLY ENROLLED IN WA18063.
     Route: 065
  8. AMLODIPINE [Concomitant]
     Dates: start: 20080101
  9. LOSARTAN POTASSIUM [Concomitant]
     Dates: start: 20080101
  10. METOPROLOL [Concomitant]
     Dates: start: 20070101
  11. ATORVASTATIN CALCIUM [Concomitant]
     Dates: start: 20100128

REACTIONS (1)
  - TRANSIENT ISCHAEMIC ATTACK [None]
